FAERS Safety Report 4318481-0 (Version None)
Quarter: 2004Q1

REPORT INFORMATION
  Report Type: 
  Country: None (occurrence: None)
  Receive Date: 20040316
  Receipt Date: 20040316
  Transmission Date: 20041129
  Serious: Yes (Life-Threatening, Hospitalization)
  Sender: FDA-Public Use
  Company Number: None

PATIENT
  Age: 47 Year
  Sex: Male
  Weight: 80 kg

DRUGS (6)
  1. WELLBUTRIN XL [Suspect]
     Indication: DEPRESSION
     Dosage: 300 MG PO Q AM ADDITIONAL 150 MG QD X 2 D, THEN 300 MG QD X 3D; 150 MG GIVEN X 1 ON 11/16/03
  2. LEXAPRO [Concomitant]
  3. AMBIEN [Concomitant]
  4. ZYPREXA [Concomitant]
  5. PROTONIX [Concomitant]
  6. TYLENOL (CAPLET) [Concomitant]

REACTIONS (6)
  - CHOKING [None]
  - CONFUSIONAL STATE [None]
  - CONVULSION [None]
  - LOSS OF CONSCIOUSNESS [None]
  - SKIN DISCOLOURATION [None]
  - TONGUE BITING [None]
